FAERS Safety Report 10163973 (Version 1)
Quarter: 2014Q2

REPORT INFORMATION
  Report Type: Spontaneous
  Country: US (occurrence: US)
  Receive Date: 20140510
  Receipt Date: 20140510
  Transmission Date: 20141212
  Serious: No
  Sender: FDA-Public Use
  Company Number: US-BRISTOL-MYERS SQUIBB COMPANY-19730225

PATIENT
  Age: 57 Year
  Sex: Female
  Weight: 97.05 kg

DRUGS (2)
  1. BYETTA PEN DISPOSABLE [Suspect]
     Indication: TYPE 2 DIABETES MELLITUS
     Dosage: STOPPED AND RESTARTED ON 27AUG13 WITH 5MCG/2/1/DAY,06OCT13
     Route: 058
     Dates: start: 2005
  2. BYDUREON [Suspect]
     Dates: start: 20130928, end: 2013

REACTIONS (7)
  - Diarrhoea [Unknown]
  - Blood glucose increased [Unknown]
  - Nausea [Unknown]
  - Decreased appetite [Unknown]
  - Malaise [Unknown]
  - Weight decreased [Unknown]
  - Insomnia [Unknown]
